FAERS Safety Report 22177834 (Version 5)
Quarter: 2023Q2

REPORT INFORMATION
  Report Type: Spontaneous
  Country: US (occurrence: US)
  Receive Date: 20230405
  Receipt Date: 20230608
  Transmission Date: 20230722
  Serious: Yes (Other)
  Sender: FDA-Public Use
  Company Number: US-PFIZER INC-PV202300054180

PATIENT
  Age: 57 Year
  Sex: Female

DRUGS (2)
  1. LORBRENA [Suspect]
     Active Substance: LORLATINIB
     Dosage: 100 MG, DAILY (4 PILLS)
     Dates: start: 20230308, end: 20230324
  2. LORBRENA [Suspect]
     Active Substance: LORLATINIB
     Dosage: 75 MG, DAILY (3 PILLS)
     Dates: start: 202304

REACTIONS (9)
  - Syncope [Unknown]
  - Hallucination [Unknown]
  - Swelling face [Unknown]
  - Visual impairment [Unknown]
  - Fall [Unknown]
  - Pain [Unknown]
  - Weight decreased [Unknown]
  - Eye swelling [Unknown]
  - Memory impairment [Unknown]
